FAERS Safety Report 7729991-8 (Version None)
Quarter: 2011Q3

REPORT INFORMATION
  Report Type: 
  Country: None (occurrence: None)
  Receive Date: 20110906
  Receipt Date: 20110824
  Transmission Date: 20111222
  Serious: Yes (Hospitalization, Other)
  Sender: FDA-Public Use
  Company Number: PHHY2011BR76076

PATIENT
  Sex: Female

DRUGS (6)
  1. FORMOTEROL FUMARATE [Suspect]
     Dosage: UNK UKN, UNK
  2. GLYBURIDE [Concomitant]
  3. HYDROCHLOROTHIAZIDE [Concomitant]
  4. AMOXIL [Concomitant]
  5. PACONDRIL [Concomitant]
  6. ENALAPRIL MALEATE [Concomitant]

REACTIONS (5)
  - BACK PAIN [None]
  - INFARCTION [None]
  - EMPHYSEMA [None]
  - CHEST PAIN [None]
  - HYPERTENSION [None]
